FAERS Safety Report 8211680-7 (Version None)
Quarter: 2012Q1

REPORT INFORMATION
  Report Type: 
  Country: None (occurrence: None)
  Receive Date: 20120315
  Receipt Date: 20120307
  Transmission Date: 20120608
  Serious: Yes (Hospitalization)
  Sender: FDA-Public Use
  Company Number: US-JNJFOC-20110906553

PATIENT
  Sex: Male

DRUGS (23)
  1. ATENOLOL [Concomitant]
     Indication: HYPERTENSION
     Route: 048
  2. BETA CAROTENE [Concomitant]
     Indication: MEDICAL DIET
     Route: 048
     Dates: start: 20080915
  3. POTASSIUM CHLORIDE [Concomitant]
     Indication: MEDICAL DIET
     Dosage: 20 MEQ/L
     Route: 048
     Dates: start: 20080910
  4. FERROUS SULFATE TAB [Concomitant]
     Indication: ANAEMIA
     Route: 048
     Dates: start: 20100902
  5. LOMOTIL [Concomitant]
     Indication: DIARRHOEA
     Dosage: WHEN NEEDED
     Route: 048
     Dates: start: 20110208
  6. LASIX [Concomitant]
     Indication: OEDEMA
     Route: 048
     Dates: start: 20080915
  7. COUMADIN [Concomitant]
     Indication: PROSTATE CANCER METASTATIC
     Route: 065
  8. PREDNISONE TAB [Suspect]
     Indication: PROSTATE CANCER METASTATIC
     Route: 048
     Dates: start: 20091002
  9. WARFARIN SODIUM [Concomitant]
     Indication: THROMBOSIS PROPHYLAXIS
     Route: 048
     Dates: start: 20090924
  10. ABIRATERONE ACETATE [Suspect]
     Indication: PROSTATE CANCER METASTATIC
     Route: 048
     Dates: start: 20091002
  11. LUPRON [Concomitant]
     Indication: HORMONE THERAPY
     Route: 065
     Dates: start: 20030101
  12. ATENOLOL [Concomitant]
     Route: 048
     Dates: start: 20080910
  13. LUPRON [Concomitant]
     Route: 065
     Dates: start: 20030101
  14. CENTRUM MULTIVITAMINS [Concomitant]
     Indication: MEDICAL DIET
     Route: 048
     Dates: start: 20090727
  15. POTASSIUM CHLORIDE [Concomitant]
     Route: 048
  16. DILANTIN [Concomitant]
     Indication: CONVULSION PROPHYLAXIS
     Route: 048
     Dates: start: 19540101
  17. NAPROXEN (ALEVE) [Concomitant]
     Indication: CANCER PAIN
     Route: 048
     Dates: start: 20100701
  18. BACTRIM [Concomitant]
     Indication: CELLULITIS
     Route: 048
     Dates: start: 20110311
  19. ABIRATERONE ACETATE [Suspect]
     Route: 048
  20. CALCIUM [Concomitant]
     Indication: MEDICAL DIET
     Route: 048
     Dates: start: 20080915
  21. DILTIAZEM HYDROCHLORIDE [Concomitant]
     Indication: HYPERTENSION
     Route: 048
     Dates: start: 20080910
  22. VITAMIN B-12 [Concomitant]
     Indication: VITAMIN SUPPLEMENTATION
     Route: 048
     Dates: start: 20101012
  23. ZOLEDRONIC ACID [Concomitant]
     Indication: METASTASES TO BONE
     Route: 042
     Dates: start: 20080925

REACTIONS (1)
  - HAEMATURIA [None]
